FAERS Safety Report 4582469-5 (Version None)
Quarter: 2005Q1

REPORT INFORMATION
  Report Type: 
  Country: None (occurrence: None)
  Receive Date: 20050211
  Receipt Date: 20050211
  Transmission Date: 20050727
  Serious: No
  Sender: FDA-Public Use
  Company Number: None

PATIENT
  Sex: Female
  Weight: 56.6996 kg

DRUGS (2)
  1. LEVAQUIN [Suspect]
     Indication: EAR INFECTION
     Dosage: 1    DAY
     Dates: start: 20040130, end: 20040204
  2. CIPRO [Suspect]
     Indication: DIVERTICULITIS
     Dosage: 2      DAY
     Dates: start: 20041213, end: 20041215

REACTIONS (12)
  - ANGINA UNSTABLE [None]
  - BACK PAIN [None]
  - BURNING SENSATION [None]
  - DIZZINESS [None]
  - EAR DISCOMFORT [None]
  - EAR PAIN [None]
  - FATIGUE [None]
  - INSOMNIA [None]
  - TINNITUS [None]
  - TOOTHACHE [None]
  - TRANSIENT ISCHAEMIC ATTACK [None]
  - VISION BLURRED [None]
